FAERS Safety Report 4480053-5 (Version None)
Quarter: 2004Q4

REPORT INFORMATION
  Report Type: 
  Country: None (occurrence: None)
  Receive Date: 20041018
  Receipt Date: 20041004
  Transmission Date: 20050328
  Serious: Yes (Disabling, Other)
  Sender: FDA-Public Use
  Company Number: 2004073955

PATIENT
  Age: 73 Year
  Sex: Male
  Weight: 95.2554 kg

DRUGS (9)
  1. VIAGRA [Suspect]
     Indication: ERECTILE DYSFUNCTION
     Dosage: ORAL
     Route: 048
     Dates: start: 20030101
  2. AMLODIPINE BESYLATE [Concomitant]
  3. DOXAZOSIN MESYLATE [Concomitant]
  4. METFORMIN HCL [Concomitant]
  5. GLIPIZIDE [Concomitant]
  6. HYDROCHLOROTHIAZIDE [Concomitant]
  7. PIOGLITAZONE HCL [Concomitant]
  8. ACETYLSALICYLI ACID (ACETYLSALICYLI ACID) [Concomitant]
  9. CAPTOPRIL [Concomitant]

REACTIONS (3)
  - BLINDNESS [None]
  - CATARACT OPERATION [None]
  - DRUG INEFFECTIVE [None]
